FAERS Safety Report 7606920-9 (Version None)
Quarter: 2011Q3

REPORT INFORMATION
  Report Type: 
  Country: None (occurrence: None)
  Receive Date: 20110713
  Receipt Date: 20110705
  Transmission Date: 20111222
  Serious: Yes (Other)
  Sender: FDA-Public Use
  Company Number: IT-ALLERGAN-1109149US

PATIENT
  Age: 32 Year
  Sex: Male

DRUGS (1)
  1. BOTULINUM TOXIN TYPE A [Suspect]
     Indication: PARAPARESIS
     Dosage: 2000 UNITS, SINGLE
     Route: 030

REACTIONS (1)
  - BOTULISM [None]
